FAERS Safety Report 15001400 (Version 5)
Quarter: 2018Q3

REPORT INFORMATION
  Report Type: Report from Study
  Country: IT (occurrence: IT)
  Receive Date: 20180612
  Receipt Date: 20180808
  Transmission Date: 20181010
  Serious: Yes (Hospitalization, Other)
  Sender: FDA-Public Use
  Company Number: IT-PFIZER INC-2018234505

PATIENT
  Age: 42 Year
  Sex: Female

DRUGS (3)
  1. LORAZEPAM. [Suspect]
     Active Substance: LORAZEPAM
     Indication: ANXIETY
     Dosage: UNK
     Route: 048
  2. QUETIAPINE. [Suspect]
     Active Substance: QUETIAPINE
     Indication: MANIA
     Dosage: UNK
     Route: 048
  3. SODIUM VALPROATE [Suspect]
     Active Substance: VALPROATE SODIUM
     Indication: EPILEPSY
     Dosage: UNK
     Route: 048

REACTIONS (9)
  - Eyelid oedema [Recovering/Resolving]
  - Lipase increased [Unknown]
  - Troponin I increased [Unknown]
  - Incontinence [Recovering/Resolving]
  - Sopor [Recovering/Resolving]
  - C-reactive protein increased [Unknown]
  - Aspartate aminotransferase increased [Unknown]
  - Drug abuse [Recovering/Resolving]
  - Blood creatine phosphokinase increased [Unknown]

NARRATIVE: CASE EVENT DATE: 20180312
